FAERS Safety Report 25217981 (Version 1)
Quarter: 2025Q2

REPORT INFORMATION
  Report Type: Report from Study
  Country: CA (occurrence: CA)
  Receive Date: 20250421
  Receipt Date: 20250421
  Transmission Date: 20250716
  Serious: Yes (Other)
  Sender: ABBVIE
  Company Number: CA-ABBVIE-6232086

PATIENT
  Sex: Male

DRUGS (12)
  1. LUPRON [Suspect]
     Active Substance: LEUPROLIDE ACETATE
     Indication: Prostate cancer
     Route: 030
     Dates: start: 20191011, end: 20241227
  2. OLODATEROL HYDROCHLORIDE\TIOTROPIUM BROMIDE MONOHYDRATE [Concomitant]
     Active Substance: OLODATEROL HYDROCHLORIDE\TIOTROPIUM BROMIDE MONOHYDRATE
     Indication: Product used for unknown indication
  3. J-cal-d [Concomitant]
     Indication: Product used for unknown indication
  4. Jamp e [Concomitant]
     Indication: Product used for unknown indication
  5. Jamp k20 [Concomitant]
     Indication: Product used for unknown indication
  6. LOPERAMIDE [Concomitant]
     Active Substance: LOPERAMIDE
     Indication: Product used for unknown indication
  7. Mar ranitidine [Concomitant]
     Indication: Product used for unknown indication
  8. SPIRONOLACTONE [Concomitant]
     Active Substance: SPIRONOLACTONE
     Indication: Product used for unknown indication
  9. FUROSEMIDE [Concomitant]
     Active Substance: FUROSEMIDE
     Indication: Product used for unknown indication
  10. VENTOLIN [Concomitant]
     Active Substance: ALBUTEROL SULFATE
     Indication: Product used for unknown indication
  11. XTANDI [Concomitant]
     Active Substance: ENZALUTAMIDE
     Indication: Product used for unknown indication
  12. ZOMETA [Concomitant]
     Active Substance: ZOLEDRONIC ACID
     Indication: Product used for unknown indication

REACTIONS (1)
  - Palliative care [Unknown]
